FAERS Safety Report 11514228 (Version 1)
Quarter: 2015Q3

REPORT INFORMATION
  Report Type: Spontaneous
  Country: US (occurrence: US)
  Receive Date: 20150903
  Receipt Date: 20150903
  Transmission Date: 20151125
  Serious: No
  Sender: FDA-Public Use
  Company Number: US-ELI_LILLY_AND_COMPANY-US201212005970

PATIENT
  Age: 66 Year
  Sex: Male

DRUGS (2)
  1. LEXAPRO [Concomitant]
     Active Substance: ESCITALOPRAM OXALATE
  2. CYMBALTA [Suspect]
     Active Substance: DULOXETINE HYDROCHLORIDE
     Indication: DIZZINESS
     Dosage: 30 MG, QD
     Dates: start: 201212

REACTIONS (4)
  - Feeling abnormal [Unknown]
  - Dizziness [Not Recovered/Not Resolved]
  - Abdominal pain upper [Unknown]
  - Off label use [Unknown]

NARRATIVE: CASE EVENT DATE: 201212
